FAERS Safety Report 20142721 (Version 1)
Quarter: 2021Q4

REPORT INFORMATION
  Report Type: Spontaneous
  Country: US (occurrence: None)
  Receive Date: 20211202
  Receipt Date: 20211202
  Transmission Date: 20220303
  Serious: No
  Sender: FDA-Public Use
  Company Number: US-ROCHE-2859048

PATIENT
  Sex: Female
  Weight: 49.940 kg

DRUGS (1)
  1. LUCENTIS [Suspect]
     Active Substance: RANIBIZUMAB
     Indication: Neovascular age-related macular degeneration
     Route: 050

REACTIONS (3)
  - Feeling abnormal [Unknown]
  - Pain [Unknown]
  - Vitreous floaters [Unknown]
